FAERS Safety Report 18706406 (Version 1)
Quarter: 2021Q1

REPORT INFORMATION
  Report Type: Report from Study
  Country: DE (occurrence: DE)
  Receive Date: 20210106
  Receipt Date: 20210106
  Transmission Date: 20210419
  Serious: Yes (Other)
  Sender: FDA-Public Use
  Company Number: DE-GLAXOSMITHKLINE-DE2020EME257950

PATIENT
  Age: 20 Year

DRUGS (2)
  1. CORTISON [Suspect]
     Active Substance: CORTISONE ACETATE
     Indication: PRODUCT USED FOR UNKNOWN INDICATION
     Dosage: UNK
     Route: 042
  2. BELIMUMAB [Suspect]
     Active Substance: BELIMUMAB
     Indication: SYSTEMIC LUPUS ERYTHEMATOSUS
     Dosage: UNK
     Route: 042

REACTIONS (32)
  - Mood swings [Unknown]
  - Muscle twitching [Unknown]
  - Systemic lupus erythematosus [Unknown]
  - Circulatory collapse [Unknown]
  - Nervous system disorder [Unknown]
  - Tremor [Not Recovered/Not Resolved]
  - Dizziness [Unknown]
  - Condition aggravated [Unknown]
  - Pruritus [Not Recovered/Not Resolved]
  - Sleep disorder [Unknown]
  - Memory impairment [Unknown]
  - Blindness [Unknown]
  - Insomnia [Not Recovered/Not Resolved]
  - Disturbance in attention [Unknown]
  - Heart rate increased [Unknown]
  - Blood pressure decreased [Unknown]
  - Asthenia [Unknown]
  - Feeling abnormal [Unknown]
  - Impaired quality of life [Unknown]
  - Mental disorder [Unknown]
  - Migraine [Unknown]
  - Fatigue [Unknown]
  - Constipation [Unknown]
  - Autonomic nervous system imbalance [Unknown]
  - Malaise [Unknown]
  - Depression [Unknown]
  - Dysphemia [Unknown]
  - Middle insomnia [Unknown]
  - Hypoaesthesia [Recovered/Resolved]
  - Fibromyalgia [Unknown]
  - Muscle disorder [Unknown]
  - Diarrhoea [Unknown]
